FAERS Safety Report 18696272 (Version 1)
Quarter: 2021Q1

REPORT INFORMATION
  Report Type: Spontaneous
  Country: DE (occurrence: DE)
  Receive Date: 20210104
  Receipt Date: 20210104
  Transmission Date: 20210419
  Serious: Yes (Other)
  Sender: FDA-Public Use
  Company Number: DE-GLAXOSMITHKLINE-DE2020256762

PATIENT
  Sex: Male
  Weight: 82 kg

DRUGS (4)
  1. SYMBICORT [Suspect]
     Active Substance: BUDESONIDE\FORMOTEROL FUMARATE DIHYDRATE
     Indication: ASTHMA
     Dosage: UNK
     Route: 055
  2. SPIRIVA [Suspect]
     Active Substance: TIOTROPIUM BROMIDE MONOHYDRATE
     Indication: ASTHMA
     Dosage: UNK
     Route: 055
  3. FORMOTEROL [Suspect]
     Active Substance: FORMOTEROL
     Indication: ASTHMA
     Dosage: UNK
     Route: 055
  4. RELVAR ELLIPTA [Suspect]
     Active Substance: FLUTICASONE FUROATE\VILANTEROL TRIFENATATE
     Indication: ASTHMA
     Dosage: UNK
     Route: 055

REACTIONS (6)
  - Myosclerosis [Recovered/Resolved]
  - Anal prolapse [Recovered/Resolved with Sequelae]
  - Pain in extremity [Recovered/Resolved]
  - Back pain [Recovered/Resolved]
  - Muscle spasms [Recovered/Resolved]
  - Neck pain [Recovered/Resolved]
